FAERS Safety Report 14429637 (Version 2)
Quarter: 2018Q1

REPORT INFORMATION
  Report Type: Report from Study
  Country: US (occurrence: US)
  Receive Date: 20180123
  Receipt Date: 20180308
  Transmission Date: 20180509
  Serious: Yes (Other)
  Sender: FDA-Public Use
  Company Number: US-AMGEN-USASL2017144488

PATIENT
  Age: 60 Year
  Sex: Female

DRUGS (2)
  1. REPATHA [Suspect]
     Active Substance: EVOLOCUMAB
     Indication: HYPERCHOLESTEROLAEMIA
     Dosage: 140 MG, EVERY 18 DAYS
     Route: 065
  2. REPATHA [Suspect]
     Active Substance: EVOLOCUMAB
     Indication: HYPERLIPIDAEMIA
     Dosage: 140 MG, Q2WK
     Route: 065
     Dates: start: 201612

REACTIONS (7)
  - Fatigue [Unknown]
  - Musculoskeletal stiffness [Unknown]
  - Hepatic steatosis [Unknown]
  - Product storage error [Unknown]
  - Nephropathy [Unknown]
  - Off label use [Unknown]
  - Pain [Unknown]

NARRATIVE: CASE EVENT DATE: 2018
